FAERS Safety Report 13521666 (Version 1)
Quarter: 2017Q2

REPORT INFORMATION
  Report Type: Spontaneous
  Country: US (occurrence: US)
  Receive Date: 20170507
  Receipt Date: 20170507
  Transmission Date: 20170830
  Serious: Yes (Other)
  Sender: FDA-Public Use
  Company Number: None

PATIENT
  Age: 66 Year
  Sex: Female
  Weight: 54.9 kg

DRUGS (4)
  1. WOMEN^S GUMMY MULTI VITAMINS [Concomitant]
  2. SPIRIVA [Concomitant]
     Active Substance: TIOTROPIUM BROMIDE MONOHYDRATE
  3. EQUATE ANTACID [Suspect]
     Active Substance: CALCIUM CARBONATE
     Indication: DYSPEPSIA
     Dosage: ?          QUANTITY:3 TABLET(S); AS NEEDED ORAL?
     Route: 048
  4. B COMPLEX GUMMY [Concomitant]

REACTIONS (3)
  - Dyspnoea [None]
  - Vomiting [None]
  - Feeling abnormal [None]

NARRATIVE: CASE EVENT DATE: 20170422
